FAERS Safety Report 16073116 (Version 1)
Quarter: 2019Q1

REPORT INFORMATION
  Report Type: Spontaneous
  Country: JP (occurrence: JP)
  Receive Date: 20190314
  Receipt Date: 20190314
  Transmission Date: 20190418
  Serious: Yes (Other)
  Sender: FDA-Public Use
  Company Number: JP-BAYER-2019-049171

PATIENT
  Sex: Male

DRUGS (2)
  1. XOFIGO [Suspect]
     Active Substance: RADIUM RA-223 DICHLORIDE
     Indication: METASTASES TO BONE
     Route: 042
  2. XOFIGO [Suspect]
     Active Substance: RADIUM RA-223 DICHLORIDE
     Indication: HORMONE-REFRACTORY PROSTATE CANCER

REACTIONS (4)
  - Lymphadenopathy [None]
  - Hormone-refractory prostate cancer [Not Recovered/Not Resolved]
  - Oropharyngeal cancer [None]
  - Metastases to lymph nodes [None]

NARRATIVE: CASE EVENT DATE: 20190201
